FAERS Safety Report 9260792 (Version 1)
Quarter: 2013Q2

REPORT INFORMATION
  Report Type: Spontaneous
  Country: US (occurrence: US)
  Receive Date: 20130429
  Receipt Date: 20130429
  Transmission Date: 20140414
  Serious: Yes (Other)
  Sender: FDA-Public Use
  Company Number: US-MYLANLABS-2013S1008399

PATIENT
  Age: 52 Year
  Sex: Male

DRUGS (1)
  1. IPRATROPIUM BROMIDE AND ALBUTEROL SULFATE INHALATION SOLUTION [Suspect]
     Indication: BRONCHITIS CHRONIC
     Route: 055
     Dates: start: 201211

REACTIONS (2)
  - Carbon monoxide poisoning [Recovered/Resolved]
  - Loss of consciousness [Recovered/Resolved]
